FAERS Safety Report 20592505 (Version 1)
Quarter: 2022Q1

REPORT INFORMATION
  Report Type: Spontaneous
  Country: US (occurrence: None)
  Receive Date: 20220314
  Receipt Date: 20220314
  Transmission Date: 20220423
  Serious: Yes (Hospitalization, Other)
  Sender: FDA-Public Use
  Company Number: US-IBSA PHARMA INC.-2022-IBS-01824

PATIENT
  Age: 60 Year

DRUGS (3)
  1. DICLOFENAC [Suspect]
     Active Substance: DICLOFENAC
     Indication: Product used for unknown indication
  2. DUPIXENT [Suspect]
     Active Substance: DUPILUMAB
     Indication: Product used for unknown indication
  3. METHYLPREDNISOLONE [Suspect]
     Active Substance: METHYLPREDNISOLONE
     Indication: Product used for unknown indication

REACTIONS (13)
  - Spinal stenosis [Unknown]
  - Myocardial infarction [Unknown]
  - Animal bite [Unknown]
  - Adverse drug reaction [Unknown]
  - Injection site haemorrhage [Unknown]
  - Eyelid margin crusting [Recovering/Resolving]
  - Inappropriate schedule of product administration [Unknown]
  - Back disorder [Unknown]
  - Abdominal discomfort [Unknown]
  - Nerve block [Unknown]
  - Pruritus [Unknown]
  - Drug ineffective [Unknown]
  - Therapeutic response shortened [Unknown]
